FAERS Safety Report 17674284 (Version 2)
Quarter: 2021Q1

REPORT INFORMATION
  Report Type: Spontaneous
  Country: US (occurrence: US)
  Receive Date: 20200416
  Receipt Date: 20210216
  Transmission Date: 20210419
  Serious: Yes (Hospitalization)
  Sender: FDA-Public Use
  Company Number: US-GLAXOSMITHKLINE-US2020063913

PATIENT
  Age: 65 Year
  Sex: Female

DRUGS (1)
  1. NUCALA [Suspect]
     Active Substance: MEPOLIZUMAB
     Indication: PRODUCT USED FOR UNKNOWN INDICATION
     Dosage: 300 MG
     Route: 058
     Dates: start: 20200320

REACTIONS (2)
  - Hospitalisation [Not Recovered/Not Resolved]
  - Wrong schedule [Unknown]

NARRATIVE: CASE EVENT DATE: 20200410
